FAERS Safety Report 4577342-2 (Version None)
Quarter: 2005Q1

REPORT INFORMATION
  Report Type: 
  Country: None (occurrence: None)
  Receive Date: 20050210
  Receipt Date: 20050207
  Transmission Date: 20050727
  Serious: Yes (Other)
  Sender: FDA-Public Use
  Company Number: US-GLAXOSMITHKLINE-A0544241A

PATIENT
  Age: 55 Year
  Sex: Female

DRUGS (3)
  1. MALARONE [Suspect]
     Indication: MALARIA PROPHYLAXIS
     Route: 048
     Dates: start: 20050116, end: 20050203
  2. ACIPHEX [Concomitant]
  3. IMITREX [Concomitant]

REACTIONS (6)
  - DISCOMFORT [None]
  - DYSGRAPHIA [None]
  - DYSPNOEA [None]
  - HYPERSENSITIVITY [None]
  - PRURITUS [None]
  - RASH GENERALISED [None]
